FAERS Safety Report 4727019-5 (Version None)
Quarter: 2005Q3

REPORT INFORMATION
  Report Type: 
  Country: None (occurrence: None)
  Receive Date: 20050726
  Receipt Date: 20050726
  Transmission Date: 20060218
  Serious: Yes (Hospitalization)
  Sender: FDA-Public Use
  Company Number: None

PATIENT
  Age: 50 Year
  Sex: Male
  Weight: 73.5 kg

DRUGS (1)
  1. THALIDOMIDE 100 MG CELGENE [Suspect]
     Indication: MULTIPLE MYELOMA
     Dosage: 200 MG DAILY ORAL
     Route: 048
     Dates: start: 20050720, end: 20050721

REACTIONS (1)
  - BRADYCARDIA [None]
